FAERS Safety Report 11564369 (Version 1)
Quarter: 2015Q3

REPORT INFORMATION
  Report Type: Report from Study
  Country: NO (occurrence: NO)
  Receive Date: 20150928
  Receipt Date: 20150928
  Transmission Date: 20151125
  Serious: Yes (Other)
  Sender: FDA-Public Use
  Company Number: US-ASTRAZENECA-2015SE74071

PATIENT
  Age: 68 Year
  Sex: Male
  Weight: 63 kg

DRUGS (2)
  1. DAXAS [Suspect]
     Active Substance: ROFLUMILAST
     Indication: CHRONIC OBSTRUCTIVE PULMONARY DISEASE
     Route: 048
     Dates: start: 20140328, end: 20140615
  2. ONBREZ [Concomitant]
     Active Substance: INDACATEROL

REACTIONS (3)
  - Adverse event [Unknown]
  - Weight decreased [Recovered/Resolved]
  - Malaise [Recovered/Resolved]

NARRATIVE: CASE EVENT DATE: 2014
